FAERS Safety Report 7867669-0 (Version None)
Quarter: 2011Q4

REPORT INFORMATION
  Report Type: 
  Country: None (occurrence: None)
  Receive Date: 20111028
  Receipt Date: 20100402
  Transmission Date: 20120403
  Serious: No
  Sender: FDA-Public Use
  Company Number: US-BAYER-201018511NA

PATIENT
  Sex: Male

DRUGS (4)
  1. HERBALS NOS W/VITAMINS NOS [Concomitant]
  2. GLUCOSAMINE [GLUCOSAMINE] [Concomitant]
  3. LEVITRA [Suspect]
     Indication: ERECTILE DYSFUNCTION
     Dosage: 10 MG, PRN
     Route: 048
     Dates: start: 20090401, end: 20090401
  4. ANTIHYPERTENSIVES [Concomitant]

REACTIONS (1)
  - ERECTILE DYSFUNCTION [None]
